FAERS Safety Report 5883739-0 (Version None)
Quarter: 2008Q3

REPORT INFORMATION
  Report Type: 
  Country: None (occurrence: None)
  Receive Date: 20080912
  Receipt Date: 20080912
  Transmission Date: 20090109
  Serious: Yes (Other)
  Sender: FDA-Public Use
  Company Number: None

PATIENT
  Age: 24 Year
  Sex: Male
  Weight: 81.6475 kg

DRUGS (1)
  1. FINASTERIDE [Suspect]
     Indication: ALOPECIA
     Dosage: 1 MG 1 DAILY TOP
     Route: 061

REACTIONS (11)
  - ASTHENIA [None]
  - DISTURBANCE IN ATTENTION [None]
  - EJACULATION FAILURE [None]
  - ERECTILE DYSFUNCTION [None]
  - HEART RATE INCREASED [None]
  - LAZINESS [None]
  - LETHARGY [None]
  - LOSS OF LIBIDO [None]
  - MENTAL IMPAIRMENT [None]
  - ORGANIC ERECTILE DYSFUNCTION [None]
  - PENIS DISORDER [None]
